FAERS Safety Report 9561901 (Version 1)
Quarter: 2013Q3

REPORT INFORMATION
  Report Type: Spontaneous
  Country: US (occurrence: US)
  Receive Date: 20130927
  Receipt Date: 20130927
  Transmission Date: 20140515
  Serious: No
  Sender: FDA-Public Use
  Company Number: US-BIOGENIDEC-2013BI064108

PATIENT
  Age: 31 Year
  Sex: Female

DRUGS (2)
  1. TECFIDERA [Suspect]
     Indication: MULTIPLE SCLEROSIS
     Route: 048
     Dates: start: 20130615, end: 20130617
  2. TECFIDERA [Suspect]
     Indication: MULTIPLE SCLEROSIS
     Route: 048
     Dates: start: 20130701

REACTIONS (6)
  - Chest pain [Unknown]
  - Pleurisy [Recovered/Resolved]
  - Prescribed underdose [Unknown]
  - Burning sensation [Not Recovered/Not Resolved]
  - Flushing [Not Recovered/Not Resolved]
  - Gastrooesophageal reflux disease [Unknown]
